FAERS Safety Report 5086283-6 (Version None)
Quarter: 2006Q3

REPORT INFORMATION
  Report Type: 
  Country: None (occurrence: None)
  Receive Date: 20060703
  Receipt Date: 20051205
  Transmission Date: 20061208
  Serious: No
  Sender: FDA-Public Use
  Company Number: 2005S1011660

PATIENT
  Age: 39 Year
  Sex: Male

DRUGS (21)
  1. CLOZAPINE [Suspect]
     Dosage: 350 MG; HS; ORAL
     Route: 048
     Dates: start: 20050831
  2. RITONAVIR/LOPINAVIR [Concomitant]
  3. FENOFIBRATE [Concomitant]
  4. NICOTINIC ACID [Concomitant]
  5. METFORMIN HYDROCHLORIDE [Concomitant]
  6. LANSOPRAZOLE [Concomitant]
  7. GEMFIBROZL [Concomitant]
  8. TERBINAFINE HCL [Concomitant]
  9. CARBAMAZEPINE [Concomitant]
  10. FERROUS FUMARATE [Concomitant]
  11. TENOFOVIR DISOPROXIL FUMARATE [Concomitant]
  12. LISINOPRIL [Concomitant]
  13. ASPIRIN [Concomitant]
  14. GABAPENTIN [Concomitant]
  15. TEGASEROD [Concomitant]
  16. PAROXETINE HYDROCHLORIDE [Concomitant]
  17. GLIBENCLAMIDE [Concomitant]
  18. FLUCONAZOLE [Concomitant]
  19. PHENYTOIN SODIUM [Concomitant]
  20. ALPRAZOLAM [Concomitant]
  21. DIAZEPAM [Concomitant]

REACTIONS (1)
  - GRANULOCYTOPENIA [None]
